FAERS Safety Report 24584637 (Version 1)
Quarter: 2024Q4

REPORT INFORMATION
  Report Type: Spontaneous
  Country: US (occurrence: None)
  Receive Date: 20241105
  Receipt Date: 20241105
  Transmission Date: 20250115
  Serious: Yes (Other)
  Sender: Public
  Company Number: None

PATIENT
  Age: 6 Week
  Sex: Male
  Weight: 4.40 kg

DRUGS (1)
  1. BEYFORTUS [Suspect]
     Active Substance: NIRSEVIMAB-ALIP
     Indication: Antiviral prophylaxis
     Route: 030
     Dates: start: 20241025

REACTIONS (3)
  - Somnolence [None]
  - Hypophagia [None]
  - Supraventricular tachycardia [None]

NARRATIVE: CASE EVENT DATE: 20241104
